FAERS Safety Report 10501230 (Version 1)
Quarter: 2014Q4

REPORT INFORMATION
  Report Type: Spontaneous
  Country: US (occurrence: None)
  Receive Date: 20141006
  Receipt Date: 20141006
  Transmission Date: 20150528
  Serious: Yes (Other)
  Sender: FDA-Public Use
  Company Number: None

PATIENT
  Age: 67 Year
  Sex: Male
  Weight: 60.3 kg

DRUGS (1)
  1. DORZOLAMIDE/TIMOLOL [Suspect]
     Active Substance: DORZOLAMIDE\TIMOLOL
     Indication: GLAUCOMA
     Dates: start: 20120420, end: 20140612

REACTIONS (3)
  - Vision blurred [None]
  - Conjunctival irritation [None]
  - Eye irritation [None]

NARRATIVE: CASE EVENT DATE: 20140620
